FAERS Safety Report 20830071 (Version 2)
Quarter: 2022Q2

REPORT INFORMATION
  Report Type: Spontaneous
  Country: IT (occurrence: IT)
  Receive Date: 20220514
  Receipt Date: 20220525
  Transmission Date: 20220720
  Serious: No
  Sender: FDA-Public Use
  Company Number: IT-UCBSA-2022016298

PATIENT
  Age: 75 Year
  Sex: Male

DRUGS (1)
  1. NEUPRO [Suspect]
     Active Substance: ROTIGOTINE
     Indication: Parkinson^s disease
     Dosage: 8 MILLIGRAM, ONCE DAILY (QD)

REACTIONS (4)
  - Hyporeflexia [Unknown]
  - Balance disorder [Unknown]
  - Therapeutic product ineffective [Unknown]
  - Product adhesion issue [Unknown]
